FAERS Safety Report 18293258 (Version 1)
Quarter: 2020Q3

REPORT INFORMATION
  Report Type: Spontaneous
  Country: US (occurrence: US)
  Receive Date: 20200921
  Receipt Date: 20200921
  Transmission Date: 20201103
  Serious: Yes (Other)
  Sender: FDA-Public Use
  Company Number: None

PATIENT
  Age: 64 Year
  Sex: Female

DRUGS (4)
  1. NATURE?THROID [Suspect]
     Active Substance: THYROID, PORCINE
     Indication: HYPOTHYROIDISM
     Dosage: ?          OTHER STRENGTH:65 MG;QUANTITY:90 TABLET(S);?
     Route: 048
     Dates: start: 20120901, end: 20200919
  2. MULTI?VITAMINS [Concomitant]
  3. CLARITIN [Concomitant]
     Active Substance: LORATADINE
  4. ESTROGEN CREAM (ESTRADIOL) [Concomitant]
     Active Substance: ESTRADIOL

REACTIONS (6)
  - Irritability [None]
  - Headache [None]
  - Fatigue [None]
  - Madarosis [None]
  - Lethargy [None]
  - Alopecia [None]

NARRATIVE: CASE EVENT DATE: 20160101
